FAERS Safety Report 4580030-X (Version None)
Quarter: 2005Q1

REPORT INFORMATION
  Report Type: 
  Country: None (occurrence: None)
  Receive Date: 20050210
  Receipt Date: 20050127
  Transmission Date: 20050727
  Serious: Yes (Life-Threatening, Hospitalization)
  Sender: FDA-Public Use
  Company Number: PHBS2005BR01530

PATIENT
  Age: 12 Year
  Sex: Female
  Weight: 34 kg

DRUGS (3)
  1. DAPSONE [Suspect]
     Indication: LEPROSY
  2. CLOFAZIMINE (CLOFAZIMINE) [Suspect]
     Indication: LEPROSY
  3. RIFAMPICIN [Suspect]

REACTIONS (27)
  - BACTERAEMIA [None]
  - CONJUNCTIVITIS [None]
  - DAPSONE SYNDROME [None]
  - DERMATITIS EXFOLIATIVE [None]
  - DRUG HYPERSENSITIVITY [None]
  - ENTEROCOCCAL BACTERAEMIA [None]
  - ESCHERICHIA URINARY TRACT INFECTION [None]
  - GENERAL PHYSICAL HEALTH DETERIORATION [None]
  - GENERALISED OEDEMA [None]
  - GINGIVAL EROSION [None]
  - HEADACHE [None]
  - HEPATIC FAILURE [None]
  - HEPATOSPLENOMEGALY [None]
  - HYPOTENSION [None]
  - INTERNATIONAL NORMALISED RATIO INCREASED [None]
  - INTESTINAL HAEMORRHAGE [None]
  - LYMPHADENOPATHY [None]
  - MALAISE [None]
  - OEDEMA PERIPHERAL [None]
  - ORAL MUCOSAL DISORDER [None]
  - PANCYTOPENIA [None]
  - PNEUMONIA [None]
  - RASH MORBILLIFORM [None]
  - RENAL FAILURE ACUTE [None]
  - SERRATIA INFECTION [None]
  - SWELLING FACE [None]
  - URINARY TRACT INFECTION [None]
